FAERS Safety Report 12442041 (Version 1)
Quarter: 2016Q2

REPORT INFORMATION
  Report Type: Spontaneous
  Country: JP (occurrence: JP)
  Receive Date: 20160607
  Receipt Date: 20160607
  Transmission Date: 20160815
  Serious: Yes (Other)
  Sender: FDA-Public Use
  Company Number: JP-TEVA-665499ISR

PATIENT
  Age: 69 Year
  Sex: Female

DRUGS (3)
  1. IRINOTECAN [Suspect]
     Active Substance: IRINOTECAN
     Indication: MALIGNANT NEOPLASM OF AMPULLA OF VATER
  2. CISPLATIN. [Suspect]
     Active Substance: CISPLATIN
     Indication: MALIGNANT NEOPLASM OF AMPULLA OF VATER
  3. MITOTANE [Suspect]
     Active Substance: MITOTANE
     Indication: HYPERCORTICOIDISM

REACTIONS (1)
  - Haematotoxicity [Unknown]
